FAERS Safety Report 12674451 (Version 1)
Quarter: 2016Q3

REPORT INFORMATION
  Report Type: Spontaneous
  Country: US (occurrence: US)
  Receive Date: 20160822
  Receipt Date: 20160822
  Transmission Date: 20161109
  Serious: No
  Sender: FDA-Public Use
  Company Number: US-BEH-2016060212

PATIENT
  Sex: Female
  Weight: 106.6 kg

DRUGS (22)
  1. EPIPEN [Concomitant]
     Active Substance: EPINEPHRINE
  2. FLONASE [Concomitant]
     Active Substance: FLUTICASONE PROPIONATE
  3. FLEXERIL [Concomitant]
     Active Substance: CYCLOBENZAPRINE HYDROCHLORIDE
  4. PREDNISONE. [Concomitant]
     Active Substance: PREDNISONE
  5. ACETAMINOPHEN. [Concomitant]
     Active Substance: ACETAMINOPHEN
  6. HEPARIN [Concomitant]
     Active Substance: HEPARIN SODIUM
  7. SODIUM CHLORIDE. [Concomitant]
     Active Substance: SODIUM CHLORIDE
  8. NEURONTIN [Concomitant]
     Active Substance: GABAPENTIN
  9. LISINOPRIL. [Concomitant]
     Active Substance: LISINOPRIL
  10. ATIVAN [Concomitant]
     Active Substance: LORAZEPAM
  11. ZEMAIRA [Suspect]
     Active Substance: .ALPHA.1-PROTEINASE INHIBITOR HUMAN
     Indication: ALPHA-1 ANTI-TRYPSIN DEFICIENCY
     Route: 042
     Dates: start: 20070605
  12. OXYGEN. [Concomitant]
     Active Substance: OXYGEN
  13. MULTIVITAMINS [Concomitant]
     Active Substance: VITAMINS
  14. SINGULAIR [Concomitant]
     Active Substance: MONTELUKAST SODIUM
  15. AMITRIPTYLINE [Concomitant]
     Active Substance: AMITRIPTYLINE
  16. TRAZODONE [Concomitant]
     Active Substance: TRAZODONE HYDROCHLORIDE
  17. SYMBICORT [Concomitant]
     Active Substance: BUDESONIDE\FORMOTEROL FUMARATE DIHYDRATE
  18. DIPHENHYDRAMINE. [Concomitant]
     Active Substance: DIPHENHYDRAMINE
  19. LIDOCAINE. [Concomitant]
     Active Substance: LIDOCAINE
  20. AMOXICILLIN. [Concomitant]
     Active Substance: AMOXICILLIN
  21. ALBUTEROL. [Concomitant]
     Active Substance: ALBUTEROL
  22. LORCET [Concomitant]
     Active Substance: ACETAMINOPHEN\HYDROCODONE BITARTRATE

REACTIONS (1)
  - Sinusitis [Unknown]
